FAERS Safety Report 25375073 (Version 1)
Quarter: 2025Q2

REPORT INFORMATION
  Report Type: Spontaneous
  Country: US (occurrence: US)
  Receive Date: 20250529
  Receipt Date: 20250529
  Transmission Date: 20250717
  Serious: Yes (Hospitalization, Other)
  Sender: Kenvue
  Company Number: US-KENVUE-20250510208

PATIENT

DRUGS (2)
  1. ACETAMINOPHEN [Suspect]
     Active Substance: ACETAMINOPHEN
     Indication: Product used for unknown indication
     Route: 048
  2. ACETAMINOPHEN [Suspect]
     Active Substance: ACETAMINOPHEN
     Indication: Accidental exposure to product

REACTIONS (7)
  - Liver injury [Unknown]
  - Acute hepatic failure [Unknown]
  - Suicide attempt [Unknown]
  - Coma [Unknown]
  - Overdose [Unknown]
  - Accidental overdose [Unknown]
  - Intentional overdose [Unknown]
